FAERS Safety Report 7659965-7 (Version None)
Quarter: 2011Q3

REPORT INFORMATION
  Report Type: 
  Country: None (occurrence: None)
  Receive Date: 20110805
  Receipt Date: 20110801
  Transmission Date: 20111222
  Serious: Yes (Hospitalization)
  Sender: FDA-Public Use
  Company Number: FR-BRISTOL-MYERS SQUIBB COMPANY-15944424

PATIENT
  Age: 72 Year
  Sex: Female

DRUGS (13)
  1. TRIMEPRAZINE TARTRATE [Concomitant]
     Dosage: 30 DROPS IN THE EVENING.THERALENE WAS REDUCED AT 10 DROPS PER DAY.
  2. TRAZODONE HCL [Suspect]
     Dates: start: 20110509
  3. PAROXETINE HCL [Suspect]
  4. ASPIRIN [Concomitant]
  5. ABILIFY [Suspect]
     Route: 048
     Dates: start: 20100601, end: 20110615
  6. FOLIC ACID [Concomitant]
  7. CACIT 1000 [Concomitant]
     Dosage: 1 SACHET/D
  8. ALENDRONATE SODIUM [Concomitant]
  9. METHOTREXATE [Suspect]
     Dosage: INITIALLY AT 15 MG/WEEK THEN 7.5 MG/WEEK FROM 07-JUN-2010
     Dates: start: 20080101
  10. MIANSERIN [Suspect]
  11. OMEPRAZOLE [Concomitant]
  12. CRESTOR [Concomitant]
  13. ATACAND [Concomitant]

REACTIONS (5)
  - MUSCLE RIGIDITY [None]
  - URINARY TRACT INFECTION [None]
  - SPEECH DISORDER [None]
  - GENERAL PHYSICAL HEALTH DETERIORATION [None]
  - TREMOR [None]
